FAERS Safety Report 17951565 (Version 2)
Quarter: 2020Q3

REPORT INFORMATION
  Report Type: Spontaneous
  Country: US (occurrence: US)
  Receive Date: 20200626
  Receipt Date: 20200702
  Transmission Date: 20201103
  Serious: No
  Sender: FDA-Public Use
  Company Number: US-PFIZER INC-2020244805

PATIENT
  Sex: Female

DRUGS (1)
  1. GABAPENTIN. [Suspect]
     Active Substance: GABAPENTIN
     Indication: SOCIAL ANXIETY DISORDER
     Dosage: 400 MG, DAILY (100 MG IN THE MORNING, 300 MG AT NIGHT AN HOUR BEFORE BED)

REACTIONS (3)
  - Product use in unapproved indication [Unknown]
  - Panic attack [Unknown]
  - Off label use [Unknown]

NARRATIVE: CASE EVENT DATE: 20200622
